FAERS Safety Report 13789710 (Version 2)
Quarter: 2017Q3

REPORT INFORMATION
  Report Type: Spontaneous
  Country: PL (occurrence: PL)
  Receive Date: 20170725
  Receipt Date: 20170809
  Transmission Date: 20171127
  Serious: Yes (Hospitalization, Other)
  Sender: FDA-Public Use
  Company Number: PL-ROCHE-1967955

PATIENT
  Age: 71 Year
  Sex: Female

DRUGS (3)
  1. DOCETAXEL. [Suspect]
     Active Substance: DOCETAXEL
     Indication: BREAST CANCER METASTATIC
     Dosage: STANDARD DOSE
     Route: 065
     Dates: start: 20170404, end: 20170404
  2. PERJETA [Suspect]
     Active Substance: PERTUZUMAB
     Indication: BREAST CANCER METASTATIC
     Dosage: STANDARD DOSE
     Route: 065
     Dates: start: 20170404, end: 20170523
  3. HERCEPTIN [Suspect]
     Active Substance: TRASTUZUMAB
     Indication: BREAST CANCER METASTATIC
     Dosage: STANDARD DOSE
     Route: 065
     Dates: start: 20170404, end: 20170523

REACTIONS (2)
  - Dehydration [Unknown]
  - Pyloric stenosis [Unknown]
